FAERS Safety Report 25967449 (Version 1)
Quarter: 2025Q4

REPORT INFORMATION
  Report Type: Spontaneous
  Country: US (occurrence: US)
  Receive Date: 20251028
  Receipt Date: 20251028
  Transmission Date: 20260118
  Serious: No
  Sender: BIOGEN
  Company Number: US-BIOGEN-2087806

PATIENT
  Sex: Female

DRUGS (2)
  1. VUMERITY [Suspect]
     Active Substance: DIROXIMEL FUMARATE
     Indication: Multiple sclerosis
     Dates: start: 20240911
  2. VUMERITY [Suspect]
     Active Substance: DIROXIMEL FUMARATE

REACTIONS (6)
  - Headache [Unknown]
  - Muscle tightness [Unknown]
  - Anxiety [Unknown]
  - Abdominal discomfort [Unknown]
  - Neck pain [Unknown]
  - Dizziness [Unknown]
